FAERS Safety Report 25808073 (Version 2)
Quarter: 2025Q3

REPORT INFORMATION
  Report Type: Spontaneous
  Country: BR (occurrence: BR)
  Receive Date: 20250916
  Receipt Date: 20250925
  Transmission Date: 20251020
  Serious: Yes (Hospitalization, Other)
  Sender: IPSEN BIOPHARMACEUTICALS, INC.
  Company Number: BR-IPSEN Group, Research and Development-2025-22705

PATIENT
  Age: 81 Year
  Sex: Female
  Weight: 81 kg

DRUGS (1)
  1. LANREOTIDE ACETATE [Suspect]
     Active Substance: LANREOTIDE ACETATE
     Indication: Product used for unknown indication

REACTIONS (17)
  - Catheterisation cardiac [Recovered/Resolved]
  - Abdominal pain [Recovered/Resolved]
  - Disease progression [Recovered/Resolved]
  - Fluid retention [Recovered/Resolved]
  - Urinary retention [Recovered/Resolved]
  - Off label use [Unknown]
  - Apathy [Recovered/Resolved]
  - Decreased appetite [Recovered/Resolved]
  - Vertigo [Recovered/Resolved]
  - Dizziness [Recovered/Resolved]
  - Asthenia [Recovered/Resolved]
  - Nausea [Recovered/Resolved]
  - Vomiting [Recovered/Resolved]
  - Constipation [Recovered/Resolved]
  - Peyronie^s disease [Recovered/Resolved]
  - Condition aggravated [Recovered/Resolved]
  - Bradycardia [Recovered/Resolved]

NARRATIVE: CASE EVENT DATE: 20180701
